FAERS Safety Report 5227928-7 (Version None)
Quarter: 2007Q1

REPORT INFORMATION
  Report Type: 
  Country: None (occurrence: None)
  Receive Date: 20070202
  Receipt Date: 20070122
  Transmission Date: 20070707
  Serious: Yes (Hospitalization, Other)
  Sender: FDA-Public Use
  Company Number: US-PFIZER INC-2005135960

PATIENT
  Sex: Female
  Weight: 70.3 kg

DRUGS (1)
  1. BEXTRA [Suspect]
     Indication: OSTEOARTHRITIS
     Route: 048

REACTIONS (4)
  - CEREBRAL INFARCTION [None]
  - DEPRESSION [None]
  - HYPERTENSION [None]
  - MYOCARDIAL INFARCTION [None]
